FAERS Safety Report 9305617 (Version 9)
Quarter: 2016Q3

REPORT INFORMATION
  Report Type: Spontaneous
  Country: FR (occurrence: FR)
  Receive Date: 20130523
  Receipt Date: 20160728
  Transmission Date: 20161109
  Serious: Yes (Other)
  Sender: FDA-Public Use
  Company Number: FR-TEVA-406212ISR

PATIENT
  Age: 43 Year
  Sex: Female
  Weight: 75 kg

DRUGS (3)
  1. FEMSEPT EVO 50 MG / 7 MG / 24H [Suspect]
     Active Substance: ESTRADIOL\LEVONORGESTREL
     Dosage: HALF PATCH
     Route: 062
     Dates: start: 2012, end: 2013
  2. PARACETAMOL [Concomitant]
     Active Substance: ACETAMINOPHEN
  3. FEMSEPT EVO 50 MG / 7 MG / 24H [Suspect]
     Active Substance: ESTRADIOL\LEVONORGESTREL
     Indication: PRIMARY HYPOGONADISM
     Dosage: 1 PATCH FOR 7 DAYS, A HALF PATCH FOR 5 DAYS.
     Route: 062
     Dates: start: 201102, end: 2012

REACTIONS (16)
  - Intentional product misuse [Unknown]
  - Red blood cell sedimentation rate abnormal [Not Recovered/Not Resolved]
  - Breast pain [Recovered/Resolved]
  - Hot flush [Unknown]
  - Psychiatric symptom [Recovered/Resolved]
  - Cyst [Not Recovered/Not Resolved]
  - Fatigue [Not Recovered/Not Resolved]
  - Myalgia [Not Recovered/Not Resolved]
  - Delirium [Unknown]
  - Weight decreased [Recovered/Resolved]
  - Psychotic disorder [Recovered/Resolved]
  - Vaginal haemorrhage [Recovered/Resolved]
  - Libido disorder [Recovered/Resolved]
  - Bipolar disorder [Recovered/Resolved]
  - Migraine [Recovered/Resolved]
  - Depression [Recovered/Resolved]

NARRATIVE: CASE EVENT DATE: 201203
